FAERS Safety Report 21791774 (Version 1)
Quarter: 2022Q4

REPORT INFORMATION
  Report Type: Spontaneous
  Country: DE (occurrence: DE)
  Receive Date: 20221229
  Receipt Date: 20221229
  Transmission Date: 20230113
  Serious: Yes (Hospitalization, Other)
  Sender: FDA-Public Use
  Company Number: DE-MACLEODS PHARMACEUTICALS US LTD-MAC2022038912

PATIENT

DRUGS (1)
  1. CLOBETASOL [Suspect]
     Active Substance: CLOBETASOL
     Indication: Acarodermatitis
     Dosage: 0.05 PERCENT, BID (CREAM)
     Route: 061

REACTIONS (2)
  - Adrenal insufficiency [Unknown]
  - Cushing^s syndrome [Recovering/Resolving]
